FAERS Safety Report 5962421-5 (Version None)
Quarter: 2008Q4

REPORT INFORMATION
  Report Type: 
  Country: None (occurrence: None)
  Receive Date: 20081121
  Receipt Date: 20081111
  Transmission Date: 20090506
  Serious: Yes (Other)
  Sender: FDA-Public Use
  Company Number: IL-MERCK-0811ISR00019

PATIENT
  Age: 5 Year
  Sex: Male

DRUGS (1)
  1. SINGULAIR [Suspect]
     Indication: ASTHMA PROPHYLAXIS
     Route: 065
     Dates: start: 20070101, end: 20080101

REACTIONS (5)
  - AUTISM [None]
  - DEPRESSED MOOD [None]
  - INSOMNIA [None]
  - MOOD SWINGS [None]
  - TINNITUS [None]
